FAERS Safety Report 6808350-6 (Version None)
Quarter: 2010Q2

REPORT INFORMATION
  Report Type: 
  Country: None (occurrence: None)
  Receive Date: 20100629
  Receipt Date: 20090524
  Transmission Date: 20101027
  Serious: No
  Sender: FDA-Public Use
  Company Number: US-PFIZER INC-2009196537

PATIENT
  Sex: Male

DRUGS (1)
  1. MEDROL [Suspect]
     Indication: GOUT
     Dosage: UNK
     Route: 048
     Dates: start: 20090301, end: 20090401

REACTIONS (2)
  - ARTHRALGIA [None]
  - DRUG INEFFECTIVE [None]
